FAERS Safety Report 17675853 (Version 1)
Quarter: 2020Q2

REPORT INFORMATION
  Report Type: Spontaneous
  Country: GB (occurrence: GB)
  Receive Date: 20200416
  Receipt Date: 20200416
  Transmission Date: 20200714
  Serious: Yes (Hospitalization, Other)
  Sender: FDA-Public Use
  Company Number: GB-PFIZER INC-2011012575

PATIENT
  Age: 73 Year
  Sex: Female

DRUGS (7)
  1. FUROSEMIDE. [Concomitant]
     Active Substance: FUROSEMIDE
     Indication: HYPERTENSION
     Dosage: 20-40 MG DAILY
     Dates: start: 2005
  2. OMEPRAZOLE. [Suspect]
     Active Substance: OMEPRAZOLE
     Indication: GASTROOESOPHAGEAL REFLUX DISEASE
     Dosage: 20-40MG DAILY
     Dates: start: 1999
  3. CIMETIDINE [Suspect]
     Active Substance: CIMETIDINE
     Dosage: 800 MG, 3X/DAY
     Dates: start: 200812
  4. RANITIDINE. [Suspect]
     Active Substance: RANITIDINE
  5. LANSOPRAZOLE. [Suspect]
     Active Substance: LANSOPRAZOLE
     Indication: GASTROOESOPHAGEAL REFLUX DISEASE
     Dosage: 30-60MG DAILY
     Dates: start: 1994
  6. BENDROFLUMETHIAZIDE [Concomitant]
     Active Substance: BENDROFLUMETHIAZIDE
     Indication: HYPERTENSION
     Dosage: 2.5 MG, 1X/DAY
     Dates: start: 2001, end: 2005
  7. PANTOPRAZOLE [Suspect]
     Active Substance: PANTOPRAZOLE

REACTIONS (15)
  - Arthralgia [Unknown]
  - Tetany [Unknown]
  - Balance disorder [Unknown]
  - Rash [Unknown]
  - Circulatory collapse [Unknown]
  - Diarrhoea [Unknown]
  - Hypomagnesaemia [Recovered/Resolved]
  - Hypocalcaemia [Recovered/Resolved]
  - Fall [Unknown]
  - Dyspepsia [Unknown]
  - Abdominal pain [Recovered/Resolved]
  - Muscle spasms [Recovered/Resolved]
  - Chest pain [Recovered/Resolved]
  - Paraesthesia [Unknown]
  - Lethargy [Unknown]

NARRATIVE: CASE EVENT DATE: 200506
